FAERS Safety Report 7387387-5 (Version None)
Quarter: 2011Q1

REPORT INFORMATION
  Report Type: 
  Country: None (occurrence: None)
  Receive Date: 20110331
  Receipt Date: 20110329
  Transmission Date: 20110831
  Serious: Yes (Death, Hospitalization)
  Sender: FDA-Public Use
  Company Number: PHHY2011IT08621

PATIENT
  Sex: Male

DRUGS (4)
  1. CYCLOSPORINE [Concomitant]
     Indication: RENAL TRANSPLANT
  2. CERTICAN [Suspect]
     Indication: RENAL TRANSPLANT
     Dosage: 1.5 MG, QD
     Route: 048
     Dates: start: 20090516
  3. BASILIXIMAB [Concomitant]
     Indication: RENAL TRANSPLANT
  4. CORTICOSTEROIDS [Concomitant]
     Indication: RENAL TRANSPLANT

REACTIONS (6)
  - CARDIOPULMONARY FAILURE [None]
  - DYSPNOEA [None]
  - BRONCHOPNEUMONIA [None]
  - PULMONARY SEPSIS [None]
  - PYREXIA [None]
  - BACTERIAL INFECTION [None]
